FAERS Safety Report 23313027 (Version 4)
Quarter: 2024Q1

REPORT INFORMATION
  Report Type: Spontaneous
  Country: US (occurrence: US)
  Receive Date: 20231219
  Receipt Date: 20240229
  Transmission Date: 20240410
  Serious: Yes (Other)
  Sender: FDA-Public Use
  Company Number: US-PFIZER INC-PV202300156338

PATIENT
  Age: 79 Year
  Sex: Female
  Weight: 102.6 kg

DRUGS (3)
  1. IBRANCE [Suspect]
     Active Substance: PALBOCICLIB
     Indication: Hormone receptor positive breast cancer
     Dosage: 125 MG, DAILY
     Route: 048
     Dates: start: 202310
  2. IBRANCE [Suspect]
     Active Substance: PALBOCICLIB
     Dosage: 1 TABLET (100 MG) DAILY ON DAYS 1-21 OF 28 DAY CYCLE
     Route: 048
     Dates: start: 20231214, end: 20240216
  3. ARIMIDEX [Concomitant]
     Active Substance: ANASTROZOLE
     Dosage: UNK
     Dates: start: 20230813

REACTIONS (3)
  - Cytopenia [Unknown]
  - Blood creatinine increased [Unknown]
  - Fatigue [Unknown]

NARRATIVE: CASE EVENT DATE: 20231130
